FAERS Safety Report 25532800 (Version 2)
Quarter: 2025Q3

REPORT INFORMATION
  Report Type: Spontaneous
  Country: JP (occurrence: JP)
  Receive Date: 20250709
  Receipt Date: 20250809
  Transmission Date: 20251020
  Serious: Yes (Hospitalization, Other)
  Sender: ALEXION PHARMACEUTICALS
  Company Number: JP-ASTRAZENECA-202506JPN027575JP

PATIENT
  Age: 49 Year
  Sex: Male

DRUGS (2)
  1. IMFINZI [Suspect]
     Active Substance: DURVALUMAB
     Indication: Non-small cell lung cancer
     Route: 065
  2. IMJUDO [Suspect]
     Active Substance: TREMELIMUMAB\TREMELIMUMAB-ACTL
     Indication: Non-small cell lung cancer
     Route: 065

REACTIONS (9)
  - Pneumonia [Unknown]
  - Myelosuppression [Unknown]
  - Hypothalamo-pituitary disorder [Unknown]
  - Adrenocorticotropic hormone deficiency [Unknown]
  - Dyspnoea [Unknown]
  - Neutrophil count increased [Unknown]
  - Liver disorder [Unknown]
  - Renal disorder [Unknown]
  - C-reactive protein increased [Unknown]
